FAERS Safety Report 7337190-7 (Version None)
Quarter: 2011Q1

REPORT INFORMATION
  Report Type: 
  Country: None (occurrence: None)
  Receive Date: 20110308
  Receipt Date: 20110301
  Transmission Date: 20110831
  Serious: Yes (Other)
  Sender: FDA-Public Use
  Company Number: US-PFIZER INC-2011025408

PATIENT
  Sex: Male

DRUGS (3)
  1. ZITHROMAX [Concomitant]
     Indication: PNEUMONIA
     Dosage: 100 MG, UNK
     Dates: start: 20110201, end: 20110206
  2. CHILDREN'S ADVIL [Suspect]
     Dosage: UNK HALF TEASPOON
     Route: 048
     Dates: start: 20110203, end: 20110203
  3. ACETAMINOPHEN [Concomitant]

REACTIONS (4)
  - RASH GENERALISED [None]
  - SWELLING FACE [None]
  - URTICARIA [None]
  - SWELLING [None]
